FAERS Safety Report 26077561 (Version 1)
Quarter: 2025Q4

REPORT INFORMATION
  Report Type: Spontaneous
  Country: US (occurrence: US)
  Receive Date: 20251121
  Receipt Date: 20251121
  Transmission Date: 20260119
  Serious: No
  Sender: NOVO NORDISK
  Company Number: US-NOVOPROD-1536150

PATIENT
  Sex: Female

DRUGS (2)
  1. TRESIBA [Suspect]
     Active Substance: INSULIN DEGLUDEC
     Dosage: 28 UNITS
     Dates: start: 20250929
  2. TRESIBA [Suspect]
     Active Substance: INSULIN DEGLUDEC
     Indication: Type 2 diabetes mellitus
     Dosage: SLIDING SCALE 28 TO 31U
     Dates: start: 202508

REACTIONS (2)
  - Muscle spasms [Unknown]
  - Diarrhoea [Unknown]
